FAERS Safety Report 5843608-9 (Version None)
Quarter: 2008Q3

REPORT INFORMATION
  Report Type: 
  Country: None (occurrence: None)
  Receive Date: 20080813
  Receipt Date: 20080618
  Transmission Date: 20090109
  Serious: No
  Sender: FDA-Public Use
  Company Number: A0733703A

PATIENT
  Age: 80 Year
  Sex: Female

DRUGS (2)
  1. COREG CR [Suspect]
     Indication: HYPERTENSION
     Dosage: 10MG PER DAY
     Route: 048
     Dates: start: 20080610
  2. NORVASC [Concomitant]

REACTIONS (3)
  - DYSPEPSIA [None]
  - FLATULENCE [None]
  - ORAL DISCOMFORT [None]
